FAERS Safety Report 9303441 (Version 1)
Quarter: 2013Q2

REPORT INFORMATION
  Report Type: Spontaneous
  Country: US (occurrence: None)
  Receive Date: 20130521
  Receipt Date: 20130521
  Transmission Date: 20140414
  Serious: No
  Sender: FDA-Public Use
  Company Number: None

PATIENT
  Age: 60 Year
  Sex: Male

DRUGS (1)
  1. NUCYNTA [Suspect]
     Indication: PAIN
     Dosage: 2 TABLETS Q4-6H PO
     Route: 048
     Dates: start: 20130510

REACTIONS (4)
  - Pain [None]
  - Dizziness [None]
  - Asthenia [None]
  - Neck pain [None]
